FAERS Safety Report 8777809 (Version 3)
Quarter: 2012Q4

REPORT INFORMATION
  Report Type: 
  Country: US (occurrence: US)
  Receive Date: 20120911
  Receipt Date: 20121005
  Transmission Date: 20130627
  Serious: Yes (Death, Hospitalization)
  Sender: FDA-Public Use
  Company Number: PHEH2012US012920

PATIENT
  Age: 69 Year
  Sex: Female

DRUGS (18)
  1. GLEEVEC [Suspect]
     Indication: CHRONIC MYELOID LEUKAEMIA
     Dosage: 400 mg, daily
     Route: 048
     Dates: start: 20051222, end: 201208
  2. GLEEVEC [Suspect]
     Dosage: 400 mg, QD
     Route: 048
     Dates: start: 20090612
  3. METOPROLOL [Concomitant]
  4. PREMARIN [Concomitant]
     Dosage: 0.625 mg, daily
  5. TEKTURNA [Concomitant]
  6. NAPROXEN [Concomitant]
  7. AVALIDE [Concomitant]
  8. GLYBURIDE [Concomitant]
     Dosage: 6 mg, (6mg in morning and 3mg in evening)
  9. POTASSIUM [Concomitant]
  10. MAGNESIUM [Concomitant]
  11. FOLIC ACID [Concomitant]
  12. ZETIA [Concomitant]
     Dosage: 10 mg, daily
  13. HYDROCHLOROTHIAZIDE [Concomitant]
     Dosage: 25 mg, daily
  14. TOPROL XL [Concomitant]
     Dosage: 50 mg, daily
  15. METFORMIN [Concomitant]
     Dosage: 1000 mg, BID
  16. NORVASC [Concomitant]
     Dosage: 10 mg, daily
  17. AVAPRO [Concomitant]
     Dosage: 300 mg, daily
  18. AVANDIA [Concomitant]
     Dosage: 40 mg, daily

REACTIONS (6)
  - Death [Fatal]
  - Lethargy [Not Recovered/Not Resolved]
  - Liver function test abnormal [Not Recovered/Not Resolved]
  - Renal function test abnormal [Not Recovered/Not Resolved]
  - Fatigue [Not Recovered/Not Resolved]
  - Diarrhoea [Unknown]
